FAERS Safety Report 5271824-6 (Version None)
Quarter: 2007Q1

REPORT INFORMATION
  Report Type: 
  Country: None (occurrence: None)
  Receive Date: 20070316
  Receipt Date: 20070228
  Transmission Date: 20070707
  Serious: Yes (Death)
  Sender: FDA-Public Use
  Company Number: 2007JP000730

PATIENT
  Age: 79 Year
  Sex: Male

DRUGS (7)
  1. PROGRAF [Suspect]
     Indication: RHEUMATOID ARTHRITIS
     Dosage: SEE IMAGE
     Route: 048
     Dates: start: 20060825, end: 20061004
  2. PROGRAF [Suspect]
     Indication: RHEUMATOID ARTHRITIS
     Dosage: SEE IMAGE
     Route: 048
     Dates: start: 20061005, end: 20061129
  3. PROGRAF [Suspect]
     Indication: RHEUMATOID ARTHRITIS
     Dosage: SEE IMAGE
     Route: 048
     Dates: start: 20061130
  4. ALOSENN (TRARAXACUM OFFICINALE, ACHILLEA MILLEFOLIUM, SENNA ALEXANDRIN [Concomitant]
  5. LASIX [Concomitant]
  6. FLUITRAN (TRICHLORMETHIAZIDE) [Concomitant]
  7. BASEN (VOGLIBOSE) [Concomitant]

REACTIONS (1)
  - CARDIAC FAILURE [None]
